FAERS Safety Report 21658784 (Version 1)
Quarter: 2022Q4

REPORT INFORMATION
  Report Type: Spontaneous
  Country: FR (occurrence: FR)
  Receive Date: 20221129
  Receipt Date: 20221129
  Transmission Date: 20230112
  Serious: Yes (Other)
  Sender: FDA-Public Use
  Company Number: FR-SA-SAC20221128000925

PATIENT
  Age: 75 Year
  Sex: Female

DRUGS (5)
  1. DUPIXENT [Suspect]
     Active Substance: DUPILUMAB
     Indication: Asthma
     Dosage: UNK
     Dates: start: 2021
  2. INNOVAIR [Concomitant]
     Active Substance: BECLOMETHASONE DIPROPIONATE\FORMOTEROL
  3. BILASTINE [Concomitant]
     Active Substance: BILASTINE
  4. NASONEX [Concomitant]
     Active Substance: MOMETASONE FUROATE
  5. SPIRIVA [Concomitant]
     Active Substance: TIOTROPIUM BROMIDE MONOHYDRATE

REACTIONS (7)
  - Cataract [Unknown]
  - Visual acuity reduced [Unknown]
  - Visual impairment [Unknown]
  - Eosinophil count abnormal [Unknown]
  - Weight increased [Unknown]
  - Dry eye [Unknown]
  - Conjunctivitis [Recovered/Resolved]

NARRATIVE: CASE EVENT DATE: 20210101
